FAERS Safety Report 21601599 (Version 1)
Quarter: 2022Q4

REPORT INFORMATION
  Report Type: Spontaneous
  Country: US (occurrence: US)
  Receive Date: 20221116
  Receipt Date: 20221116
  Transmission Date: 20230112
  Serious: No
  Sender: FDA-Public Use
  Company Number: US-002147023-NVSC2022US257263

PATIENT
  Sex: Female

DRUGS (1)
  1. DUREZOL [Suspect]
     Active Substance: DIFLUPREDNATE
     Indication: Eye infection
     Dosage: UNK (6 TIMES A DAY)
     Route: 065

REACTIONS (3)
  - Condition aggravated [Unknown]
  - Hypersensitivity [Unknown]
  - Ocular hyperaemia [Unknown]
